FAERS Safety Report 10543272 (Version 1)
Quarter: 2014Q4

REPORT INFORMATION
  Report Type: Spontaneous
  Country: US (occurrence: None)
  Receive Date: 20141010
  Receipt Date: 20141010
  Transmission Date: 20150529
  Serious: Yes (Other)
  Sender: FDA-Public Use
  Company Number: 163-POMAL-14063052

PATIENT
  Age: 65 Year
  Sex: Female

DRUGS (12)
  1. POTASSIUM (POTASSIUM) [Concomitant]
     Active Substance: POTASSIUM
  2. VITAMIN B-12 (CYANOCOBALAMIN) [Concomitant]
  3. COLACE [Concomitant]
     Active Substance: DOCUSATE SODIUM
  4. AGGRENOX (ASASANTIN) (CAPSULES) [Concomitant]
  5. FUROSEMIDE (FUROSEMIDE) [Concomitant]
     Active Substance: FUROSEMIDE
  6. TAZTIA XT (DILTIAZEM HYDROCHLORIDE) [Concomitant]
  7. LISINOPRIL/HCTZ (PRINZIDE) [Concomitant]
  8. POMALYST [Suspect]
     Active Substance: POMALIDOMIDE
     Indication: PLASMA CELL MYELOMA
     Dosage: 21 IN 28 D
     Route: 048
     Dates: start: 20130716
  9. VITAMIN D (ERGOCALCIFEROL) [Concomitant]
     Active Substance: ERGOCALCIFEROL
  10. SYNTHROID [Concomitant]
     Active Substance: LEVOTHYROXINE SODIUM
  11. METFORMIN [Concomitant]
     Active Substance: METFORMIN HYDROCHLORIDE
  12. GABAPENTIN (GABAPENTIN) [Concomitant]
     Active Substance: GABAPENTIN

REACTIONS (2)
  - Pain in extremity [None]
  - Superficial vein prominence [None]

NARRATIVE: CASE EVENT DATE: 20140501
